FAERS Safety Report 19974633 (Version 2)
Quarter: 2022Q1

REPORT INFORMATION
  Report Type: Report from Study
  Country: JP (occurrence: JP)
  Receive Date: 20211020
  Receipt Date: 20220301
  Transmission Date: 20220423
  Serious: Yes (Hospitalization, Other)
  Sender: FDA-Public Use
  Company Number: JP-TEVA-696051ISR

PATIENT
  Age: 23 Year
  Sex: Female
  Weight: 49.5 kg

DRUGS (2)
  1. GLATIRAMER ACETATE [Suspect]
     Active Substance: GLATIRAMER ACETATE
     Indication: Relapsing-remitting multiple sclerosis
     Dosage: 20 MILLIGRAM DAILY;
     Route: 058
     Dates: start: 20160303
  2. CALONAL [Concomitant]
     Active Substance: ACETAMINOPHEN
     Route: 065
     Dates: start: 20130303, end: 201608

REACTIONS (4)
  - Multiple sclerosis relapse [Recovered/Resolved]
  - Genital herpes [Recovered/Resolved]
  - Injection site pruritus [Recovered/Resolved]
  - Stress [Recovered/Resolved]

NARRATIVE: CASE EVENT DATE: 20160303
